FAERS Safety Report 14984444 (Version 1)
Quarter: 2018Q2

REPORT INFORMATION
  Report Type: Spontaneous
  Country: GB (occurrence: GB)
  Receive Date: 20180607
  Receipt Date: 20180607
  Transmission Date: 20180711
  Serious: Yes (Other)
  Sender: FDA-Public Use
  Company Number: GB-PFIZER INC-2018230805

PATIENT

DRUGS (1)
  1. METHOTREXATE SODIUM. [Suspect]
     Active Substance: METHOTREXATE SODIUM
     Dosage: BETWEEN 12 OR 12.5 MG
     Route: 037

REACTIONS (4)
  - Pyrexia [Unknown]
  - Vomiting [Unknown]
  - Meningitis chemical [Unknown]
  - Headache [Unknown]
